FAERS Safety Report 17704647 (Version 1)
Quarter: 2020Q2

REPORT INFORMATION
  Report Type: Spontaneous
  Country: US (occurrence: US)
  Receive Date: 20200424
  Receipt Date: 20200424
  Transmission Date: 20200714
  Serious: Yes (Hospitalization)
  Sender: FDA-Public Use
  Company Number: None

PATIENT
  Age: 76 Year
  Sex: Male

DRUGS (15)
  1. ELIQUIS [Concomitant]
     Active Substance: APIXABAN
  2. METOPROLOL. [Concomitant]
     Active Substance: METOPROLOL
  3. MYTOMYCIN [Suspect]
     Active Substance: MITOMYCIN
     Indication: PRODUCT USED FOR UNKNOWN INDICATION
     Dosage: ?          OTHER FREQUENCY:WEEKLY FOR 6 WEEKS;?
     Route: 043
  4. CIPROFLOXACIN. [Concomitant]
     Active Substance: CIPROFLOXACIN
  5. FISH OIL [Concomitant]
     Active Substance: FISH OIL
  6. GINKGO BILOB [Concomitant]
  7. OMEPRAZOLE. [Concomitant]
     Active Substance: OMEPRAZOLE
  8. PROBIOTIC [Concomitant]
     Active Substance: PROBIOTICS NOS
  9. VITAMIN E [Concomitant]
     Active Substance: .ALPHA.-TOCOPHEROL
  10. GINSEING [Concomitant]
  11. GLUCOS/CHOND [Concomitant]
  12. HYDROCHLOROT [Concomitant]
     Active Substance: HYDROCHLOROTHIAZIDE
  13. POTASSIUM [Concomitant]
     Active Substance: POTASSIUM
  14. SIMVASTATIN. [Concomitant]
     Active Substance: SIMVASTATIN
  15. CALCIUM [Concomitant]
     Active Substance: CALCIUM

REACTIONS (8)
  - Atrial fibrillation [None]
  - Abdominal pain [None]
  - Sepsis [None]
  - Vomiting [None]
  - Diarrhoea [None]
  - Nausea [None]
  - Pyrexia [None]
  - Urinary tract infection [None]

NARRATIVE: CASE EVENT DATE: 20200401
